FAERS Safety Report 4835522-2 (Version None)
Quarter: 2005Q4

REPORT INFORMATION
  Report Type: 
  Country: None (occurrence: None)
  Receive Date: 20051118
  Receipt Date: 20051110
  Transmission Date: 20060501
  Serious: Yes (Hospitalization, Disabling, Other)
  Sender: FDA-Public Use
  Company Number: 2005154719

PATIENT
  Age: 53 Year
  Sex: Male

DRUGS (5)
  1. NEURONTIN [Suspect]
     Indication: CONVULSION
     Dosage: 1800 MG (300 MG, 6 IN 1 D), ORAL
     Route: 048
  2. TEGRETOL [Suspect]
     Indication: CONVULSION
     Dosage: ORAL
     Route: 048
     Dates: end: 20051101
  3. ALL OTHER NON-THERAPEUTIC PRODUCTS (ALL OTHER NON-THERAPEUTIC PRODUCTS [Suspect]
     Indication: TINEA PEDIS
     Dates: start: 20050101
  4. OXYGEN (OXYGEN) [Concomitant]
  5. DRUG, UNSPECIFIED (DRUG UNSPECIFIED) [Concomitant]

REACTIONS (18)
  - ABASIA [None]
  - ASTHENIA [None]
  - CAUSTIC INJURY [None]
  - CHRONIC OBSTRUCTIVE PULMONARY DISEASE [None]
  - CONVULSION [None]
  - DIFFICULTY IN WALKING [None]
  - DISORIENTATION [None]
  - DRUG INEFFECTIVE [None]
  - DRUG LEVEL DECREASED [None]
  - MALNUTRITION [None]
  - ORAL INTAKE REDUCED [None]
  - PARAESTHESIA [None]
  - SENSORY DISTURBANCE [None]
  - THERMAL BURN [None]
  - THINKING ABNORMAL [None]
  - TINEA PEDIS [None]
  - UNEVALUABLE EVENT [None]
  - WEIGHT DECREASED [None]
